FAERS Safety Report 26182335 (Version 1)
Quarter: 2025Q4

REPORT INFORMATION
  Report Type: Spontaneous
  Country: US (occurrence: US)
  Receive Date: 20251221
  Receipt Date: 20251221
  Transmission Date: 20260118
  Serious: No
  Sender: ELI LILLY AND COMPANY
  Company Number: US-ELI_LILLY_AND_COMPANY-US202512001689

PATIENT
  Age: 84 Year
  Sex: Female

DRUGS (3)
  1. PIRTOBRUTINIB [Interacting]
     Active Substance: PIRTOBRUTINIB
     Indication: Product used for unknown indication
     Dosage: UNK UNK, UNKNOWN
     Route: 065
  2. PIRTOBRUTINIB [Interacting]
     Active Substance: PIRTOBRUTINIB
     Dosage: UNK UNK, UNKNOWN (50 PERCENT DOSE REDUCTION)
     Route: 065
  3. VENCLEXTA [Interacting]
     Active Substance: VENETOCLAX
     Indication: Product used for unknown indication
     Dosage: UNK UNK, UNKNOWN
     Route: 065

REACTIONS (1)
  - Drug interaction [Unknown]
